FAERS Safety Report 16752451 (Version 10)
Quarter: 2019Q4

REPORT INFORMATION
  Report Type: Report from Study
  Country: FR (occurrence: FR)
  Receive Date: 20190828
  Receipt Date: 20191115
  Transmission Date: 20200122
  Serious: Yes (Hospitalization)
  Sender: FDA-Public Use
  Company Number: FR-EISAI MEDICAL RESEARCH-EC-2019-061340

PATIENT
  Age: 71 Year
  Sex: Male
  Weight: 81.2 kg

DRUGS (10)
  1. XATRAL [Concomitant]
     Active Substance: ALFUZOSIN
     Dates: start: 201906
  2. LENVATINIB [Suspect]
     Active Substance: LENVATINIB
     Dosage: 8 MILLIGRAM (BW WEIGHT [BW] GREATER THAN OR EQUAL TO (=) 60 KG
     Route: 048
     Dates: start: 20190805, end: 20190811
  3. LENVATINIB [Suspect]
     Active Substance: LENVATINIB
     Indication: HEPATOCELLULAR CARCINOMA
     Dosage: 12 MILLIGRAM (BW WEIGHT [BW] GREATER THAN OR EQUAL TO (=) 60 KG
     Route: 048
     Dates: start: 20190717, end: 20190804
  4. FUROSEMIDE. [Concomitant]
     Active Substance: FUROSEMIDE
     Dates: start: 20190702, end: 20191001
  5. PEMBROLIZUMAB. [Suspect]
     Active Substance: PEMBROLIZUMAB
     Dosage: BLINDED
     Route: 041
     Dates: start: 20191001
  6. COVERAM [Concomitant]
     Active Substance: AMLODIPINE\PERINDOPRIL
     Dates: start: 201906
  7. IMOVANE [Concomitant]
     Active Substance: ZOPICLONE
     Dates: start: 20190702
  8. DIFFU-K [Concomitant]
     Active Substance: POTASSIUM CHLORIDE
     Dates: start: 20190726, end: 20190801
  9. LENVATINIB [Suspect]
     Active Substance: LENVATINIB
     Dosage: 8 MILLIGRAM (BW WEIGHT [BW] GREATER THAN OR EQUAL TO (=) 60 KG
     Route: 048
     Dates: start: 20191001
  10. PEMBROLIZUMAB. [Suspect]
     Active Substance: PEMBROLIZUMAB
     Indication: HEPATOCELLULAR CARCINOMA
     Dosage: BLINDED
     Route: 041
     Dates: start: 20190717, end: 20190717

REACTIONS (1)
  - Haemorrhoidal haemorrhage [Recovered/Resolved]

NARRATIVE: CASE EVENT DATE: 20190805
